FAERS Safety Report 11319338 (Version 1)
Quarter: 2015Q3

REPORT INFORMATION
  Report Type: Spontaneous
  Country: US (occurrence: None)
  Receive Date: 20150728
  Receipt Date: 20150728
  Transmission Date: 20151125
  Serious: Yes (Death, Hospitalization)
  Sender: FDA-Public Use
  Company Number: None

PATIENT
  Age: 37 Year
  Sex: Female

DRUGS (15)
  1. ELTROMBOPAG [Concomitant]
     Active Substance: ELTROMBOPAG
  2. FERROUS SULFATE [Concomitant]
     Active Substance: FERROUS SULFATE\FERROUS SULFATE, DRIED
  3. LEVETIRACETAM. [Concomitant]
     Active Substance: LEVETIRACETAM
  4. OXYCODONE ER [Concomitant]
  5. HYDROMORPHONE [Concomitant]
     Active Substance: HYDROMORPHONE
  6. PREDNISONE. [Concomitant]
     Active Substance: PREDNISONE
  7. TOPIRAMATE. [Concomitant]
     Active Substance: TOPIRAMATE
  8. ENOXAPARIN [Suspect]
     Active Substance: ENOXAPARIN
     Indication: ANTICOAGULANT THERAPY
     Dosage: DATES OF USE: PRIOR TO ADMISSION-14-MAY-2015
     Route: 058
  9. AZATHIOPRINE. [Concomitant]
     Active Substance: AZATHIOPRINE
  10. GABAPENTIN. [Concomitant]
     Active Substance: GABAPENTIN
  11. NORTRIPTYLINE [Concomitant]
     Active Substance: NORTRIPTYLINE
  12. SENNA [Concomitant]
     Active Substance: SENNA LEAF\SENNOSIDES\SENNOSIDES A AND B
  13. LANSOPRAZOLE. [Concomitant]
     Active Substance: LANSOPRAZOLE
  14. DIPHENHYDRAMINE. [Concomitant]
     Active Substance: DIPHENHYDRAMINE
  15. ALBUTEROL. [Concomitant]
     Active Substance: ALBUTEROL

REACTIONS (6)
  - Thrombocytopenia [None]
  - Pain [None]
  - Haemorrhage intracranial [None]
  - Oral disorder [None]
  - Petechiae [None]
  - Skin lesion [None]

NARRATIVE: CASE EVENT DATE: 20150514
